FAERS Safety Report 24184405 (Version 1)
Quarter: 2024Q3

REPORT INFORMATION
  Report Type: Spontaneous
  Country: US (occurrence: US)
  Receive Date: 20240807
  Receipt Date: 20240807
  Transmission Date: 20241017
  Serious: No
  Sender: DR REDDYS
  Company Number: US-DRL-USA-LIT/USA/24/0011257

PATIENT
  Age: 57 Year
  Sex: Male

DRUGS (10)
  1. SIROLIMUS [Suspect]
     Active Substance: SIROLIMUS
     Indication: Chronic spontaneous urticaria
     Dosage: 3 MG DAILY
  2. TACROLIMUS [Suspect]
     Active Substance: TACROLIMUS
     Indication: Immunosuppressant drug therapy
     Dosage: 2 MG BID
     Route: 048
  3. TACROLIMUS [Suspect]
     Active Substance: TACROLIMUS
     Indication: Chronic spontaneous urticaria
  4. OMALIZUMAB [Concomitant]
     Active Substance: OMALIZUMAB
     Indication: Immunosuppressant drug therapy
     Dosage: 300 MG Q4W
  5. OMALIZUMAB [Concomitant]
     Active Substance: OMALIZUMAB
     Indication: Chronic spontaneous urticaria
  6. PREDNISONE [Concomitant]
     Active Substance: PREDNISONE
     Indication: Chronic spontaneous urticaria
     Dosage: 10-15 MG DAILY
  7. DAPSONE [Concomitant]
     Active Substance: DAPSONE
     Indication: Chronic spontaneous urticaria
     Dosage: 50 MG DAILY
  8. HYDROXYCHLOROQUINE [Concomitant]
     Active Substance: HYDROXYCHLOROQUINE
     Indication: Chronic spontaneous urticaria
  9. MYCOPHENOLIC ACID [Concomitant]
     Active Substance: MYCOPHENOLIC ACID
     Indication: Chronic spontaneous urticaria
     Dosage: 500 MG BID
  10. OLSALAZINE [Concomitant]
     Active Substance: OLSALAZINE
     Indication: Chronic spontaneous urticaria
     Dosage: 500 MG BID

REACTIONS (3)
  - Oedema peripheral [Recovered/Resolved]
  - Drug effective for unapproved indication [Unknown]
  - Drug ineffective for unapproved indication [Unknown]
